FAERS Safety Report 19817553 (Version 3)
Quarter: 2021Q4

REPORT INFORMATION
  Report Type: Spontaneous
  Country: US (occurrence: US)
  Receive Date: 20210910
  Receipt Date: 20211004
  Transmission Date: 20220304
  Serious: Yes (Other)
  Sender: FDA-Public Use
  Company Number: US-BIOMARINAP-US-2021-138490

PATIENT
  Age: 8 Year
  Sex: Female

DRUGS (1)
  1. VIMIZIM [Suspect]
     Active Substance: ELOSULFASE ALFA
     Indication: Mucopolysaccharidosis IV
     Dosage: 35 MILLIGRAM, QW
     Route: 042
     Dates: start: 2015

REACTIONS (6)
  - COVID-19 [Not Recovered/Not Resolved]
  - Haemoptysis [Unknown]
  - Productive cough [Unknown]
  - Pyrexia [Unknown]
  - Nasal congestion [Not Recovered/Not Resolved]
  - Malaise [Unknown]

NARRATIVE: CASE EVENT DATE: 20210907
